FAERS Safety Report 5598004-9 (Version None)
Quarter: 2008Q1

REPORT INFORMATION
  Report Type: 
  Country: None (occurrence: None)
  Receive Date: 20080122
  Receipt Date: 20080111
  Transmission Date: 20080703
  Serious: Yes (Hospitalization, Other)
  Sender: FDA-Public Use
  Company Number: US-JNJFOC-20080102871

PATIENT
  Sex: Female
  Weight: 149.23 kg

DRUGS (5)
  1. DURAGESIC-100 [Suspect]
     Indication: BACK PAIN
     Route: 062
  2. GLUCOTROL [Concomitant]
     Indication: DIABETES MELLITUS
     Route: 048
  3. COUMADIN [Concomitant]
     Route: 048
  4. COUMADIN [Concomitant]
     Indication: ANTICOAGULANT THERAPY
     Route: 048
  5. LOPRESSOR [Concomitant]
     Indication: BLOOD PRESSURE
     Route: 048

REACTIONS (7)
  - BACK PAIN [None]
  - GOITRE [None]
  - INTERNATIONAL NORMALISED RATIO INCREASED [None]
  - THERAPY CESSATION [None]
  - THYROID NEOPLASM [None]
  - WEIGHT DECREASED [None]
  - WITHDRAWAL SYNDROME [None]
